FAERS Safety Report 7723428-0 (Version None)
Quarter: 2011Q3

REPORT INFORMATION
  Report Type: 
  Country: None (occurrence: None)
  Receive Date: 20110901
  Receipt Date: 20110829
  Transmission Date: 20111222
  Serious: Yes (Other)
  Sender: FDA-Public Use
  Company Number: US-PFIZER INC-2011201975

PATIENT
  Age: 22 Year
  Sex: Male
  Weight: 113 kg

DRUGS (1)
  1. VIAGRA [Suspect]
     Indication: SEXUAL DYSFUNCTION
     Dosage: 50 MG, UNK
     Route: 048

REACTIONS (3)
  - PENILE PAIN [None]
  - DIARRHOEA [None]
  - ERECTION INCREASED [None]
